FAERS Safety Report 9607848 (Version 2)
Quarter: 2013Q4

REPORT INFORMATION
  Report Type: Spontaneous
  Country: US (occurrence: US)
  Receive Date: 20131009
  Receipt Date: 20131018
  Transmission Date: 20140711
  Serious: Yes (Other)
  Sender: FDA-Public Use
  Company Number: US-CELGENEUS-163-21880-13100395

PATIENT
  Age: 72 Year
  Sex: Male

DRUGS (6)
  1. REVLIMID [Suspect]
     Indication: PLASMA CELL MYELOMA
     Dosage: 15 MILLIGRAM
     Route: 048
     Dates: start: 201007, end: 201103
  2. EFFEXOR [Concomitant]
     Indication: PRODUCT USED FOR UNKNOWN INDICATION
     Route: 065
  3. LEVOXYL [Concomitant]
     Indication: THYROID DISORDER
     Route: 065
  4. FLOMAX [Concomitant]
     Indication: PRODUCT USED FOR UNKNOWN INDICATION
     Route: 065
  5. AMLODIPINE [Concomitant]
     Indication: BLOOD PRESSURE
     Route: 065
  6. DIABETIC MEDICATION [Concomitant]
     Indication: BLOOD GLUCOSE
     Route: 065

REACTIONS (3)
  - Bladder cancer [Unknown]
  - Blood glucose abnormal [Not Recovered/Not Resolved]
  - Foreign body sensation in eyes [Not Recovered/Not Resolved]
